FAERS Safety Report 5196285-7 (Version None)
Quarter: 2006Q4

REPORT INFORMATION
  Report Type: 
  Country: None (occurrence: None)
  Receive Date: 20061222
  Receipt Date: 20061211
  Transmission Date: 20070319
  Serious: Yes (Other)
  Sender: FDA-Public Use
  Company Number: 2006152571

PATIENT
  Age: 70 Year
  Sex: Female

DRUGS (5)
  1. LYRICA [Suspect]
     Indication: ARTHRITIS
     Dosage: 50 MG (50 MG, 1 IN 1 D), ORAL
     Route: 048
     Dates: start: 20060101
  2. BISOPROLOL FUMARATE [Concomitant]
  3. ANABOL-LOGES (HYPERICUM EXTRACT, MAGNESIUM PHOSPHATE, POTASSIUM CHLORI [Concomitant]
  4. JODTHYROX (LEVOTHYROXINE SODIUM, POTASSIUM IODIDE) [Concomitant]
  5. ANTIHYPERTENSIVES (ANTIHYPERTENSIVES) [Concomitant]

REACTIONS (17)
  - BLOOD PRESSURE INCREASED [None]
  - CHEST DISCOMFORT [None]
  - DEPRESSION [None]
  - DRY MOUTH [None]
  - DYSPEPSIA [None]
  - FATIGUE [None]
  - FLATULENCE [None]
  - FLUID RETENTION [None]
  - GAIT DISTURBANCE [None]
  - HYPERHIDROSIS [None]
  - HYPOTENSION [None]
  - NAUSEA [None]
  - ORAL INTAKE REDUCED [None]
  - RESTLESSNESS [None]
  - TREMOR [None]
  - VISION BLURRED [None]
  - VOMITING [None]
